FAERS Safety Report 21624436 (Version 2)
Quarter: 2022Q4

REPORT INFORMATION
  Report Type: Report from Study
  Country: IT (occurrence: IT)
  Receive Date: 20221121
  Receipt Date: 20221208
  Transmission Date: 20230113
  Serious: Yes (Hospitalization)
  Sender: FDA-Public Use
  Company Number: IT-ABBVIE-4207884

PATIENT
  Weight: 74 kg

DRUGS (3)
  1. RISANKIZUMAB [Suspect]
     Active Substance: RISANKIZUMAB
     Indication: Product used for unknown indication
     Dosage: 150 MG PER 3 MONTHS
     Route: 058
     Dates: start: 20210921
  2. RISANKIZUMAB [Suspect]
     Active Substance: RISANKIZUMAB
     Dosage: 150 MG PER MONTH
     Route: 058
     Dates: start: 20210824, end: 20210921
  3. BETAMETHASONE\CALCIPOTRIENE [Concomitant]
     Active Substance: BETAMETHASONE\CALCIPOTRIENE
     Indication: Psoriasis
     Dosage: 2 MILLIGRAM, TOPIC / SKIN /DERMAL SPRAY

REACTIONS (2)
  - Spinal osteoarthritis [Recovering/Resolving]
  - Myelopathy [Recovering/Resolving]
